FAERS Safety Report 5378134-7 (Version None)
Quarter: 2007Q3

REPORT INFORMATION
  Report Type: 
  Country: None (occurrence: None)
  Receive Date: 20070705
  Receipt Date: 20070622
  Transmission Date: 20080115
  Serious: Yes (Other)
  Sender: FDA-Public Use
  Company Number: PHBS2007JP09857

PATIENT
  Age: 102 Year
  Sex: Female

DRUGS (3)
  1. GLEEVEC [Suspect]
     Indication: CHRONIC MYELOID LEUKAEMIA
     Dosage: 100 MG/D
     Route: 048
     Dates: start: 20050101, end: 20070430
  2. GLEEVEC [Suspect]
     Dosage: 200 MG/D
     Route: 048
     Dates: start: 20070501, end: 20070606
  3. GLEEVEC [Suspect]
     Dosage: 100 MG/D
     Route: 048
     Dates: start: 20070607

REACTIONS (7)
  - ANAEMIA [None]
  - APLASIA PURE RED CELL [None]
  - BLOOD CREATININE ABNORMAL [None]
  - CREATININE RENAL CLEARANCE [None]
  - HAEMOGLOBIN DECREASED [None]
  - HYPONATRAEMIA [None]
  - RENAL DISORDER [None]
